FAERS Safety Report 15695129 (Version 1)
Quarter: 2018Q4

REPORT INFORMATION
  Report Type: Spontaneous
  Country: US (occurrence: US)
  Receive Date: 20181206
  Receipt Date: 20181206
  Transmission Date: 20190205
  Serious: No
  Sender: FDA-Public Use
  Company Number: US-ENDO PHARMACEUTICALS INC-2018-036061

PATIENT
  Age: 33 Year
  Sex: Male
  Weight: 77.1 kg

DRUGS (3)
  1. XIAFLEX [Suspect]
     Active Substance: COLLAGENASE CLOSTRIDIUM HISTOLYTICUM
     Dosage: CYCLE 1 COMPLETED (TWO INJECTIONS TOTAL)
     Route: 026
     Dates: start: 201802
  2. XIAFLEX [Suspect]
     Active Substance: COLLAGENASE CLOSTRIDIUM HISTOLYTICUM
     Dosage: CYCLE 2, INJECTION 1
     Route: 026
     Dates: start: 20180326
  3. XIAFLEX [Suspect]
     Active Substance: COLLAGENASE CLOSTRIDIUM HISTOLYTICUM
     Indication: PEYRONIE^S DISEASE
     Dosage: CYCLE 2, INJECTION 2
     Route: 026
     Dates: start: 20180327

REACTIONS (6)
  - Mass [Recovering/Resolving]
  - Hyperaesthesia [Recovering/Resolving]
  - Tenderness [Recovering/Resolving]
  - Skin exfoliation [Recovering/Resolving]
  - Injection site pain [Recovering/Resolving]
  - Injection site vesicles [Recovering/Resolving]

NARRATIVE: CASE EVENT DATE: 2018
